FAERS Safety Report 17609620 (Version 1)
Quarter: 2020Q2

REPORT INFORMATION
  Report Type: Spontaneous
  Country: DK (occurrence: DK)
  Receive Date: 20200401
  Receipt Date: 20200401
  Transmission Date: 20200713
  Serious: Yes (Disabling)
  Sender: FDA-Public Use
  Company Number: DK-PFIZER INC-2020133036

PATIENT
  Age: 45 Year
  Sex: Male

DRUGS (1)
  1. DEPO-MEDROL [Suspect]
     Active Substance: METHYLPREDNISOLONE ACETATE
     Indication: BURSITIS
     Dosage: 80 MG, UNK
     Route: 050
     Dates: start: 20180629

REACTIONS (10)
  - Pyrexia [Recovered/Resolved]
  - Joint swelling [Recovered/Resolved]
  - Arthralgia [Recovered/Resolved]
  - Disease recurrence [Recovered/Resolved with Sequelae]
  - Erythema [Recovered/Resolved]
  - Wound [Recovered/Resolved]
  - Bursitis infective [Recovered/Resolved with Sequelae]
  - Arthritis infective [Recovered/Resolved]
  - Skin infection [Recovered/Resolved]
  - Joint warmth [Recovered/Resolved]

NARRATIVE: CASE EVENT DATE: 201807
